FAERS Safety Report 19705320 (Version 1)
Quarter: 2021Q3

REPORT INFORMATION
  Report Type: Spontaneous
  Country: US (occurrence: US)
  Receive Date: 20210816
  Receipt Date: 20210816
  Transmission Date: 20211014
  Serious: Yes (Other)
  Sender: FDA-Public Use
  Company Number: None

PATIENT
  Age: 72 Year
  Sex: Male

DRUGS (1)
  1. FINASTERIDE TABLETS [Suspect]
     Active Substance: FINASTERIDE
     Dates: start: 20210802, end: 20210813

REACTIONS (2)
  - Joint swelling [None]
  - Pruritus [None]
